FAERS Safety Report 10580148 (Version 1)
Quarter: 2014Q4

REPORT INFORMATION
  Report Type: Report from Study
  Country: US (occurrence: US)
  Receive Date: 20141112
  Receipt Date: 20141112
  Transmission Date: 20150529
  Serious: Yes (Hospitalization, Other)
  Sender: FDA-Public Use
  Company Number: US-ABBVIE-14K-163-1306229-00

PATIENT
  Age: 24 Year
  Sex: Female
  Weight: 72.64 kg

DRUGS (10)
  1. HUMIRA [Suspect]
     Active Substance: ADALIMUMAB
     Route: 065
     Dates: start: 201403, end: 20140809
  2. MICROGESTIN [Concomitant]
     Active Substance: ETHINYL ESTRADIOL\NORETHINDRONE ACETATE
     Indication: CONTRACEPTION
  3. HUMIRA [Suspect]
     Active Substance: ADALIMUMAB
     Route: 065
     Dates: start: 2010, end: 201402
  4. IMURAN [Concomitant]
     Active Substance: AZATHIOPRINE
     Indication: CROHN^S DISEASE
     Dates: end: 2013
  5. IMURAN [Concomitant]
     Active Substance: AZATHIOPRINE
     Dates: start: 2014
  6. HUMIRA [Suspect]
     Active Substance: ADALIMUMAB
     Indication: CROHN^S DISEASE
     Dosage: INITIAL DOSE
     Route: 065
     Dates: start: 2010, end: 2010
  7. HUMIRA [Suspect]
     Active Substance: ADALIMUMAB
     Route: 065
     Dates: start: 201410
  8. OMEPRAZOLE. [Concomitant]
     Active Substance: OMEPRAZOLE
     Indication: CROHN^S DISEASE
  9. HUMIRA [Suspect]
     Active Substance: ADALIMUMAB
     Dosage: ON DAY 15
     Route: 065
     Dates: start: 2010, end: 2010
  10. SERTRALINE [Concomitant]
     Active Substance: SERTRALINE HYDROCHLORIDE
     Indication: DEPRESSION

REACTIONS (7)
  - Enteritis [Recovering/Resolving]
  - Small intestinal resection [Unknown]
  - Abdominal pain [Recovering/Resolving]
  - Drug dose omission [Unknown]
  - Vaginal abscess [Recovered/Resolved]
  - Vaginal abscess [Recovered/Resolved]
  - Ileostomy [Unknown]

NARRATIVE: CASE EVENT DATE: 201402
